FAERS Safety Report 11863057 (Version 2)
Quarter: 2017Q1

REPORT INFORMATION
  Report Type: Spontaneous
  Country: US (occurrence: US)
  Receive Date: 20151223
  Receipt Date: 20170313
  Transmission Date: 20170428
  Serious: Yes (Other)
  Sender: FDA-Public Use
  Company Number: US-ELI_LILLY_AND_COMPANY-US201512006746

PATIENT
  Sex: Female

DRUGS (2)
  1. CYMBALTA [Suspect]
     Active Substance: DULOXETINE HYDROCHLORIDE
     Dosage: 60 MG, UNKNOWN
     Route: 065
  2. CYMBALTA [Suspect]
     Active Substance: DULOXETINE HYDROCHLORIDE
     Indication: PRODUCT USED FOR UNKNOWN INDICATION
     Dosage: 90 MG, UNKNOWN
     Route: 065

REACTIONS (20)
  - Depression [Recovered/Resolved]
  - Crying [Recovered/Resolved]
  - Vertigo [Unknown]
  - Fatigue [Unknown]
  - Drug withdrawal syndrome [Unknown]
  - Headache [Recovered/Resolved]
  - Paraesthesia [Unknown]
  - Insomnia [Unknown]
  - Suicidal ideation [Unknown]
  - Vomiting [Recovered/Resolved]
  - Hyperhidrosis [Unknown]
  - Seizure [Unknown]
  - Sensory disturbance [Unknown]
  - Diarrhoea [Recovered/Resolved]
  - Irritability [Unknown]
  - Agitation [Recovered/Resolved]
  - Nightmare [Unknown]
  - Dizziness [Unknown]
  - Nausea [Recovered/Resolved]
  - Anxiety [Recovered/Resolved]
